FAERS Safety Report 10155041 (Version 1)
Quarter: 2014Q2

REPORT INFORMATION
  Report Type: Spontaneous
  Country: FR (occurrence: FR)
  Receive Date: 20140506
  Receipt Date: 20140506
  Transmission Date: 20141212
  Serious: Yes (Hospitalization, Other)
  Sender: FDA-Public Use
  Company Number: FR-PFIZER INC-2014119626

PATIENT
  Age: 82 Year
  Sex: Male

DRUGS (7)
  1. TRIATEC [Suspect]
     Dosage: 2.5 MG, DAILY
     Route: 048
     Dates: end: 20140205
  2. PYOSTACINE [Suspect]
     Indication: ERYSIPELAS
     Dosage: UNK
     Route: 048
     Dates: start: 20140204, end: 20140205
  3. UROREC [Suspect]
     Dosage: 8 MG (1 DF), DAILY
     Route: 048
     Dates: end: 20140205
  4. CARDENSIEL [Concomitant]
     Dosage: UNK
  5. INSPRA [Concomitant]
     Dosage: UNK
  6. LASILIX [Concomitant]
     Dosage: UNK
  7. COUMADINE [Concomitant]
     Dosage: UNK

REACTIONS (3)
  - Hypotension [Unknown]
  - Malaise [Unknown]
  - Renal failure chronic [Unknown]
